FAERS Safety Report 9433058 (Version 2)
Quarter: 2013Q3

REPORT INFORMATION
  Report Type: Spontaneous
  Country: SI (occurrence: SI)
  Receive Date: 20130731
  Receipt Date: 20130806
  Transmission Date: 20140515
  Serious: Yes (Other)
  Sender: FDA-Public Use
  Company Number: SI-JNJFOC-20130714287

PATIENT
  Age: 43 Year
  Sex: Female
  Weight: 90 kg

DRUGS (2)
  1. REMICADE [Suspect]
     Indication: PUSTULAR PSORIASIS
     Dosage: THERAPY DURATION WAS 1 DAY
     Route: 042
     Dates: start: 20130514, end: 20130514
  2. REMICADE [Suspect]
     Indication: PUSTULAR PSORIASIS
     Dosage: THERAPY DURATION WAS 1 DAY
     Route: 042
     Dates: start: 20130528, end: 20130528

REACTIONS (8)
  - Lupus-like syndrome [Unknown]
  - Arthralgia [Not Recovered/Not Resolved]
  - Musculoskeletal stiffness [Not Recovered/Not Resolved]
  - Headache [Not Recovered/Not Resolved]
  - Fatigue [Not Recovered/Not Resolved]
  - Arthralgia [Not Recovered/Not Resolved]
  - Malaise [Recovering/Resolving]
  - Myalgia [Not Recovered/Not Resolved]
